FAERS Safety Report 9034727 (Version 1)
Quarter: 2013Q1

REPORT INFORMATION
  Report Type: Report from Study
  Country: SG (occurrence: SG)
  Receive Date: 20130128
  Receipt Date: 20130128
  Transmission Date: 20140127
  Serious: Yes (Hospitalization)
  Sender: FDA-Public Use
  Company Number: SG-BAYER-2013-008597

PATIENT
  Sex: 0

DRUGS (3)
  1. ASPIRIN [Suspect]
     Indication: NEOPLASM MALIGNANT
  2. PREDNISOLONE [Interacting]
     Indication: NEOPLASM MALIGNANT
  3. ERYTHROMYCIN [Suspect]

REACTIONS (4)
  - Respiratory failure [None]
  - Hypochromic anaemia [None]
  - Occult blood positive [None]
  - Gastrointestinal haemorrhage [None]
